FAERS Safety Report 10196497 (Version 4)
Quarter: 2015Q2

REPORT INFORMATION
  Report Type: Report from Study
  Country: BE (occurrence: BE)
  Receive Date: 20140527
  Receipt Date: 20150521
  Transmission Date: 20150821
  Serious: Yes (Hospitalization)
  Sender: FDA-Public Use
  Company Number: BE-SA-2014SA063411

PATIENT
  Age: 49 Year
  Sex: Female
  Weight: 78.9 kg

DRUGS (2)
  1. CAPECITABINE. [Suspect]
     Active Substance: CAPECITABINE
     Indication: BREAST CANCER METASTATIC
     Route: 048
     Dates: start: 20140508, end: 20140512
  2. AFLIBERCEPT [Suspect]
     Active Substance: AFLIBERCEPT
     Indication: BREAST CANCER METASTATIC
     Dosage: FREQUENCY: D1 Q 3W
     Route: 042
     Dates: start: 20140508, end: 20140508

REACTIONS (1)
  - Chest pain [Recovered/Resolved]

NARRATIVE: CASE EVENT DATE: 20140510
